FAERS Safety Report 12936526 (Version 3)
Quarter: 2017Q2

REPORT INFORMATION
  Report Type: Spontaneous
  Country: US (occurrence: US)
  Receive Date: 20161114
  Receipt Date: 20170522
  Transmission Date: 20170830
  Serious: Yes (Death, Hospitalization, Other)
  Sender: FDA-Public Use
  Company Number: US-AMGEN-USASP2016156233

PATIENT
  Age: 49 Year
  Sex: Male

DRUGS (2)
  1. BLINCYTO [Suspect]
     Active Substance: BLINATUMOMAB
     Indication: ACUTE LYMPHOCYTIC LEUKAEMIA
     Dosage: 28 MUG, CYCLICAL
     Route: 065
     Dates: start: 20161020, end: 20161105
  2. CYTARABINE. [Concomitant]
     Active Substance: CYTARABINE
     Dosage: UNK
     Dates: start: 20161107

REACTIONS (15)
  - Hypovolaemia [Unknown]
  - Failure to thrive [Unknown]
  - Platelet count decreased [Unknown]
  - Respiratory failure [Fatal]
  - Renal failure [Fatal]
  - Confusional state [Unknown]
  - Epistaxis [Unknown]
  - Tumour lysis syndrome [Unknown]
  - Nausea [Unknown]
  - Haemoglobin decreased [Unknown]
  - Decreased appetite [Unknown]
  - Hypotension [Unknown]
  - Blood culture positive [Unknown]
  - Dehydration [Unknown]
  - White blood cell count abnormal [Unknown]

NARRATIVE: CASE EVENT DATE: 201611
